FAERS Safety Report 5105276-3 (Version None)
Quarter: 2006Q3

REPORT INFORMATION
  Report Type: 
  Country: None (occurrence: None)
  Receive Date: 20060911
  Receipt Date: 20060903
  Transmission Date: 20061208
  Serious: Yes (Other)
  Sender: FDA-Public Use
  Company Number: 2006106524

PATIENT
  Age: 23 Year
  Sex: Female
  Weight: 51.2565 kg

DRUGS (1)
  1. NEOSPORIN [Suspect]
     Indication: CHAPPED LIPS
     Dosage: COATS HER LIPS 30-40 TIMES DAILY, TOPICAL
     Route: 061
     Dates: start: 20060801

REACTIONS (2)
  - DEPENDENCE [None]
  - DRUG WITHDRAWAL SYNDROME [None]
